FAERS Safety Report 8949784 (Version 1)
Quarter: 2012Q4

REPORT INFORMATION
  Report Type: 
  Country: US (occurrence: US)
  Receive Date: 20121206
  Receipt Date: 20121206
  Transmission Date: 20130627
  Serious: Yes (Death)
  Sender: FDA-Public Use
  Company Number: PHEH2012US023823

PATIENT
  Age: 81 Year
  Sex: Male
  Weight: 68.3 kg

DRUGS (1)
  1. EXJADE [Suspect]

REACTIONS (1)
  - Death [Fatal]
